FAERS Safety Report 4317294-3 (Version None)
Quarter: 2004Q1

REPORT INFORMATION
  Report Type: 
  Country: None (occurrence: None)
  Receive Date: 20040312
  Receipt Date: 20040227
  Transmission Date: 20041129
  Serious: Yes (Other)
  Sender: FDA-Public Use
  Company Number: 2004014772

PATIENT
  Age: 77 Year
  Sex: Male

DRUGS (1)
  1. ACUILIX (QUINAPRIL, HYDROCHLOROTHIAZIDE) [Suspect]
     Indication: HYPERTENSION
     Dosage: 20 MG/12.5 MG DAILY
     Dates: end: 20040227

REACTIONS (3)
  - ERYTHEMA [None]
  - PHARYNGEAL OEDEMA [None]
  - SWELLING FACE [None]
